FAERS Safety Report 5609749-6 (Version None)
Quarter: 2008Q1

REPORT INFORMATION
  Report Type: 
  Country: None (occurrence: None)
  Receive Date: 20080131
  Receipt Date: 20070916
  Transmission Date: 20080703
  Serious: No
  Sender: FDA-Public Use
  Company Number: US-BAYER-200712967BCC

PATIENT
  Age: 3 Year
  Sex: Female
  Weight: 18 kg

DRUGS (2)
  1. ALEVE COLD AND SINUS [Suspect]
     Indication: ACCIDENTAL EXPOSURE
     Dosage: AS USED: 220/120 MG  UNIT DOSE: 220 MG
     Route: 048
     Dates: start: 20070916
  2. EQUATE SINUS [Concomitant]
     Indication: HYPERSENSITIVITY

REACTIONS (1)
  - UNEVALUABLE EVENT [None]
